FAERS Safety Report 23644861 (Version 1)
Quarter: 2024Q1

REPORT INFORMATION
  Report Type: Spontaneous
  Country: US (occurrence: None)
  Receive Date: 20240317
  Receipt Date: 20240317
  Transmission Date: 20240410
  Serious: Yes (Other)
  Sender: FDA-Public Use
  Company Number: None

PATIENT
  Age: 53 Year
  Sex: Female
  Weight: 63 kg

DRUGS (5)
  1. NURTEC ODT [Suspect]
     Active Substance: RIMEGEPANT SULFATE
     Indication: Migraine
     Dosage: OTHER QUANTITY : 1 CAPSULE(S);?FREQUENCY : AS NEEDED;?
     Route: 060
     Dates: start: 20230904, end: 20240215
  2. estrogen skin patch [Concomitant]
  3. PROGESTERONE [Concomitant]
     Active Substance: PROGESTERONE
  4. Tretinoin topical creme [Concomitant]
  5. MINOXIDIL [Concomitant]
     Active Substance: MINOXIDIL

REACTIONS (2)
  - Dysphagia [None]
  - Therapy cessation [None]

NARRATIVE: CASE EVENT DATE: 20240120
